FAERS Safety Report 14770531 (Version 1)
Quarter: 2018Q2

REPORT INFORMATION
  Report Type: Report from Study
  Country: BR (occurrence: BR)
  Receive Date: 20180417
  Receipt Date: 20180417
  Transmission Date: 20180711
  Serious: Yes (Hospitalization)
  Sender: FDA-Public Use
  Company Number: BR-PFIZER INC-2018109053

PATIENT
  Age: 63 Year
  Sex: Male
  Weight: 93 kg

DRUGS (2)
  1. TORISEL [Suspect]
     Active Substance: TEMSIROLIMUS
     Indication: METASTATIC RENAL CELL CARCINOMA
     Dosage: 40 MG, DAILY
     Route: 048
     Dates: start: 201710, end: 201711
  2. TORISEL [Suspect]
     Active Substance: TEMSIROLIMUS
     Dosage: 10 MG, DAILY
     Route: 048
     Dates: start: 201711, end: 201802

REACTIONS (2)
  - Lung infection [Unknown]
  - Hepatic function abnormal [Recovered/Resolved]

NARRATIVE: CASE EVENT DATE: 2017
